FAERS Safety Report 20090959 (Version 4)
Quarter: 2022Q3

REPORT INFORMATION
  Report Type: Report from Study
  Country: CA (occurrence: CA)
  Receive Date: 20211119
  Receipt Date: 20220805
  Transmission Date: 20221027
  Serious: Yes (Other)
  Sender: FDA-Public Use
  Company Number: CA-PFIZER INC-202101585515

PATIENT
  Age: 56 Year
  Sex: Female

DRUGS (12)
  1. METHOTREXATE SODIUM [Suspect]
     Active Substance: METHOTREXATE SODIUM
     Dosage: 25 MG
     Route: 058
  2. METHYLPREDNISOLONE SODIUM SUCCINATE [Suspect]
     Active Substance: METHYLPREDNISOLONE SODIUM SUCCINATE
     Dosage: 100 MG
     Route: 042
  3. RITUXIMAB [Suspect]
     Active Substance: RITUXIMAB
     Indication: Pemphigoid
     Dosage: 1000 MG
     Route: 065
  4. RITUXIMAB [Suspect]
     Active Substance: RITUXIMAB
     Indication: Pemphigoid
     Dosage: 1 G
     Route: 042
  5. RITUXIMAB [Suspect]
     Active Substance: RITUXIMAB
     Indication: Crohn^s disease
     Dosage: 1000 MG
     Route: 042
  6. ACETAMINOPHEN [Suspect]
     Active Substance: ACETAMINOPHEN
     Dosage: 650 MG
     Route: 048
  7. DIPHENHYDRAMINE [Suspect]
     Active Substance: DIPHENHYDRAMINE
     Dosage: 50 MG
     Route: 048
  8. RAMIPRIL [Suspect]
     Active Substance: RAMIPRIL
     Dosage: UNK
     Route: 065
  9. MYFORTIC [Suspect]
     Active Substance: MYCOPHENOLATE SODIUM
     Dosage: UNK
     Route: 065
  10. ACETAMINOPHEN [Concomitant]
     Active Substance: ACETAMINOPHEN
     Dosage: 650 MG
     Route: 048
  11. DIPHENHYDRAMINE [Concomitant]
     Active Substance: DIPHENHYDRAMINE
     Dosage: 50 MG
     Route: 048
  12. METHYLPREDNISOLONE [Concomitant]
     Active Substance: METHYLPREDNISOLONE
     Dosage: 100 MG
     Route: 042

REACTIONS (7)
  - Asthma [Not Recovered/Not Resolved]
  - Hypertension [Not Recovered/Not Resolved]
  - Off label use [Not Recovered/Not Resolved]
  - Pulmonary embolism [Not Recovered/Not Resolved]
  - Urinary tract infection [Not Recovered/Not Resolved]
  - Product use in unapproved indication [Not Recovered/Not Resolved]
  - Pneumonia [Not Recovered/Not Resolved]
